FAERS Safety Report 5657224-5 (Version None)
Quarter: 2008Q1

REPORT INFORMATION
  Report Type: 
  Country: None (occurrence: None)
  Receive Date: 20080310
  Receipt Date: 20080215
  Transmission Date: 20080703
  Serious: Yes (Hospitalization, Disabling)
  Sender: FDA-Public Use
  Company Number: FR-ASTRAZENECA-2008SE01261

PATIENT
  Age: 865 Month
  Sex: Female

DRUGS (5)
  1. COKENZEN [Suspect]
     Indication: HYPERTENSION
     Dosage: 16+12.5 MG
     Route: 048
     Dates: start: 20070301
  2. MONOTILDIEM [Suspect]
     Indication: DRUG USE FOR UNKNOWN INDICATION
     Route: 048
     Dates: start: 20070401
  3. OSTRAM D3 [Suspect]
     Indication: OSTEOPOROSIS
     Route: 048
     Dates: start: 20051101, end: 20071101
  4. ACTONEL [Suspect]
     Indication: OSTEOPOROSIS
     Route: 048
     Dates: start: 20051101
  5. OPHTIM [Concomitant]
     Indication: GLAUCOMA
     Route: 047
     Dates: start: 20021201, end: 20080101

REACTIONS (1)
  - SPEECH DISORDER [None]
